FAERS Safety Report 14537901 (Version 1)
Quarter: 2018Q1

REPORT INFORMATION
  Report Type: Spontaneous
  Country: US (occurrence: US)
  Receive Date: 20180216
  Receipt Date: 20180216
  Transmission Date: 20180509
  Serious: Yes (Hospitalization, Other)
  Sender: FDA-Public Use
  Company Number: US-AMGEN-USASP2018018586

PATIENT
  Age: 79 Year
  Sex: Female
  Weight: 45.35 kg

DRUGS (2)
  1. PROLIA [Suspect]
     Active Substance: DENOSUMAB
     Indication: OSTEOPOROSIS POSTMENOPAUSAL
     Dosage: 60 MG, Q6MO
     Route: 058
     Dates: start: 201706
  2. VITAMIN C [Concomitant]
     Active Substance: ASCORBIC ACID
     Indication: SKIN IRRITATION
     Dosage: UNK

REACTIONS (6)
  - Cerebrovascular accident [Unknown]
  - Pain in jaw [Unknown]
  - Retinal artery occlusion [Unknown]
  - Dermatitis psoriasiform [Recovered/Resolved]
  - Arthralgia [Unknown]
  - Haemorrhagic stroke [Unknown]

NARRATIVE: CASE EVENT DATE: 2017
